FAERS Safety Report 7985701-0 (Version None)
Quarter: 2011Q4

REPORT INFORMATION
  Report Type: 
  Country: None (occurrence: None)
  Receive Date: 20111216
  Receipt Date: 20111216
  Transmission Date: 20120403
  Serious: Yes (Other)
  Sender: FDA-Public Use
  Company Number: None

PATIENT
  Sex: Male
  Weight: 56.6 kg

DRUGS (9)
  1. MESALAMINE [Concomitant]
  2. FIDAXOMICIN [Suspect]
     Indication: CLOSTRIDIAL INFECTION
     Dosage: 200MG
     Route: 048
     Dates: start: 20111115, end: 20111118
  3. LEVOTHYROXINE SODIUM [Concomitant]
  4. PANTOPRAZOLE [Concomitant]
  5. SIMVASTATIN [Concomitant]
  6. CARVEDILOL [Concomitant]
  7. FOLIC ACID [Concomitant]
  8. SODIUM BICARBONATE [Concomitant]
  9. SACCHAROMYCES BOULARDII [Concomitant]

REACTIONS (1)
  - LEUKOPENIA [None]
